FAERS Safety Report 4377451-7 (Version None)
Quarter: 2004Q2

REPORT INFORMATION
  Report Type: 
  Country: None (occurrence: None)
  Receive Date: 20040609
  Receipt Date: 20040525
  Transmission Date: 20050107
  Serious: Yes (Hospitalization, Other)
  Sender: FDA-Public Use
  Company Number: DE_040513648

PATIENT
  Sex: Male

DRUGS (4)
  1. ZYPREXA [Suspect]
     Indication: SCHIZOPHRENIA
     Dosage: 30 MG/1 DAY
     Dates: start: 20020101, end: 20040504
  2. GLIANIMON (BENPERIDOL) [Concomitant]
  3. PANTOZOL (PANTOPRAZOLE SODIUM) [Concomitant]
  4. NAC (ACETYLCYSTEINE) [Concomitant]

REACTIONS (9)
  - CREATINE PHOSPHOKINASE DECREASED [None]
  - FALL [None]
  - HALLUCINATION [None]
  - INFECTION [None]
  - NEUROLEPTIC MALIGNANT SYNDROME [None]
  - OVERDOSE [None]
  - POLYTRAUMATISM [None]
  - PSYCHOTIC DISORDER [None]
  - RETROGRADE AMNESIA [None]
